FAERS Safety Report 21002623 (Version 1)
Quarter: 2022Q2

REPORT INFORMATION
  Report Type: Spontaneous
  Country: US (occurrence: US)
  Receive Date: 20220624
  Receipt Date: 20220624
  Transmission Date: 20220721
  Serious: No
  Sender: FDA-Public Use
  Company Number: US-BioHaven Pharmaceuticals-2022BHV001341

PATIENT
  Age: 26 Year
  Sex: Male
  Weight: 81.720 kg

DRUGS (1)
  1. NURTEC ODT [Suspect]
     Active Substance: RIMEGEPANT SULFATE
     Indication: Migraine
     Dosage: DISSOLVE ONE TABLET (75 MG TOTAL) ON TONGUE DAILY. DO NOT TAKE MORE THAN ONE TABLET IN A 24-HOUR PER
     Route: 048
     Dates: start: 20220505, end: 20220505

REACTIONS (6)
  - Blood pressure increased [Unknown]
  - Erythema [Unknown]
  - Swelling [Unknown]
  - Hypersensitivity [Unknown]
  - Rash [Unknown]
  - Dyspnoea [Unknown]

NARRATIVE: CASE EVENT DATE: 20220505
